FAERS Safety Report 12955790 (Version 1)
Quarter: 2016Q4

REPORT INFORMATION
  Report Type: Spontaneous
  Country: US (occurrence: US)
  Receive Date: 20161118
  Receipt Date: 20161118
  Transmission Date: 20170207
  Serious: No
  Sender: FDA-Public Use
  Company Number: US-GLAXOSMITHKLINE-US2016169820

PATIENT
  Age: 28 Year
  Sex: Female

DRUGS (2)
  1. ALLI [Suspect]
     Active Substance: ORLISTAT
     Indication: WEIGHT LOSS DIET
     Dosage: 2 PILLS, QD
     Dates: start: 201606
  2. ALLI [Suspect]
     Active Substance: ORLISTAT
     Dosage: 3 PILLS, QD
     Dates: start: 201611

REACTIONS (4)
  - Weight increased [Not Recovered/Not Resolved]
  - Drug ineffective [Unknown]
  - Steatorrhoea [Recovered/Resolved]
  - Product quality issue [Unknown]
